FAERS Safety Report 16001883 (Version 1)
Quarter: 2019Q1

REPORT INFORMATION
  Report Type: Spontaneous
  Country: PL (occurrence: PL)
  Receive Date: 20190225
  Receipt Date: 20190225
  Transmission Date: 20190418
  Serious: Yes (Congenital Anomaly, Other)
  Sender: FDA-Public Use
  Company Number: PL-MYLANLABS-2019M1016010

PATIENT
  Sex: Male

DRUGS (6)
  1. FOLLICLE STIMULATING HORMONE, RECOMBINANT [Suspect]
     Active Substance: FOLLITROPIN
     Indication: OVULATION INDUCTION
     Route: 064
  2. ERYTHROPOIETIN [Suspect]
     Active Substance: ERYTHROPOIETIN
     Indication: PRODUCT USED FOR UNKNOWN INDICATION
     Route: 064
  3. TACROLIMUS. [Suspect]
     Active Substance: TACROLIMUS
     Indication: IMMUNOSUPPRESSION
     Dosage: TITRATED
     Route: 064
  4. PREDNISONE. [Suspect]
     Active Substance: PREDNISONE
     Indication: IMMUNOSUPPRESSION
     Dosage: UNK
     Route: 064
  5. PREDNISOLONE. [Suspect]
     Active Substance: PREDNISOLONE
     Indication: IMMUNOSUPPRESSION
     Dosage: 4 MG, QD
     Route: 064
  6. AZATHIOPRINE. [Suspect]
     Active Substance: AZATHIOPRINE
     Indication: IMMUNOSUPPRESSION
     Dosage: 75 MG, QD
     Route: 064

REACTIONS (4)
  - Foetal exposure during pregnancy [Recovered/Resolved]
  - Foetal growth restriction [Recovering/Resolving]
  - Congenital choroid plexus cyst [Recovering/Resolving]
  - Cardiac disorder [Recovering/Resolving]
